FAERS Safety Report 26108669 (Version 1)
Quarter: 2025Q4

REPORT INFORMATION
  Report Type: Spontaneous
  Country: US (occurrence: None)
  Receive Date: 20251128
  Receipt Date: 20251128
  Transmission Date: 20260118
  Serious: Yes (Disabling)
  Sender: FDA-CTU
  Company Number: None

PATIENT
  Age: 67 Year
  Sex: Female
  Weight: 69.75 kg

DRUGS (6)
  1. CIPROFLOXACIN [Suspect]
     Active Substance: CIPROFLOXACIN
     Indication: Helicobacter infection
     Dosage: DAILY ORAL ?
     Route: 048
  2. MERCURY [Suspect]
     Active Substance: MERCURY
  3. METOPROLOL [Concomitant]
     Active Substance: METOPROLOL
  4. Acarbosa 25 mg [Concomitant]
  5. Vitamins A,B,C, E, D [Concomitant]
  6. MAGNESIUM [Concomitant]
     Active Substance: MAGNESIUM

REACTIONS (2)
  - Medium-chain acyl-coenzyme A dehydrogenase deficiency [None]
  - Metal poisoning [None]

NARRATIVE: CASE EVENT DATE: 20131102
